FAERS Safety Report 4475607-6 (Version None)
Quarter: 2004Q3

REPORT INFORMATION
  Report Type: 
  Country: None (occurrence: None)
  Receive Date: 20040923
  Receipt Date: 20040712
  Transmission Date: 20050211
  Serious: No
  Sender: FDA-Public Use
  Company Number: USA040772477

PATIENT
  Age: 80 Year
  Sex: Male

DRUGS (1)
  1. FORTEO [Suspect]
     Indication: BONE DISORDER
     Dosage: 20 UG DAY
     Dates: start: 20040701

REACTIONS (3)
  - DIARRHOEA [None]
  - MUSCLE CRAMP [None]
  - STOMACH DISCOMFORT [None]
